FAERS Safety Report 9476277 (Version 1)
Quarter: 2013Q3

REPORT INFORMATION
  Report Type: Spontaneous
  Country: US (occurrence: US)
  Receive Date: 20130826
  Receipt Date: 20130826
  Transmission Date: 20140515
  Serious: Yes (Other)
  Sender: FDA-Public Use
  Company Number: US-PFIZER INC-2013242521

PATIENT
  Sex: Male

DRUGS (1)
  1. TORISEL [Suspect]
     Dosage: UNK

REACTIONS (4)
  - Posterior reversible encephalopathy syndrome [Unknown]
  - Impaired driving ability [Unknown]
  - Mental status changes [Unknown]
  - Diarrhoea [Unknown]
